FAERS Safety Report 7199233-3 (Version None)
Quarter: 2010Q4

REPORT INFORMATION
  Report Type: 
  Country: None (occurrence: None)
  Receive Date: 20101223
  Receipt Date: 20101223
  Transmission Date: 20110411
  Serious: Yes (Hospitalization)
  Sender: FDA-Public Use
  Company Number: None

PATIENT
  Age: 63 Year
  Sex: Female
  Weight: 58 kg

DRUGS (9)
  1. ANASTROZOLE (ARIMIDEX) [Suspect]
     Indication: BREAST CANCER
     Dosage: 1MG ONCE A DAY ORAL (047)
     Route: 048
     Dates: start: 20100804, end: 20101201
  2. ANASTROZOLE (ARIMIDEX) [Suspect]
  3. PERCOCET [Concomitant]
  4. ZOMETA [Concomitant]
  5. IBUPROFEN [Concomitant]
  6. FLONASE [Concomitant]
  7. GLUCOPHAGE [Concomitant]
  8. SPIRONOLACTONE [Concomitant]
  9. LASIX [Concomitant]

REACTIONS (6)
  - BREAST CANCER METASTATIC [None]
  - DEHYDRATION [None]
  - GLOMERULAR FILTRATION RATE DECREASED [None]
  - MALIGNANT ASCITES [None]
  - MALIGNANT NEOPLASM PROGRESSION [None]
  - REFUSAL OF TREATMENT BY PATIENT [None]
